FAERS Safety Report 10030615 (Version 1)
Quarter: 2014Q1

REPORT INFORMATION
  Report Type: Spontaneous
  Country: US (occurrence: US)
  Receive Date: 20140323
  Receipt Date: 20140323
  Transmission Date: 20141002
  Serious: No
  Sender: FDA-Public Use
  Company Number: US-ALLERGAN-1319305US

PATIENT
  Age: 50 Year
  Sex: Female

DRUGS (2)
  1. LATISSE 0.03% [Suspect]
     Indication: GROWTH OF EYELASHES
     Dosage: EVERY NIGHT AT BEDTIME
     Route: 061
     Dates: start: 20130820, end: 201312
  2. THYROID THERAPY [Concomitant]
     Indication: HYPOTHYROIDISM

REACTIONS (2)
  - Discomfort [Unknown]
  - Drug ineffective [Unknown]
